FAERS Safety Report 12686713 (Version 1)
Quarter: 2016Q3

REPORT INFORMATION
  Report Type: Spontaneous
  Country: US (occurrence: US)
  Receive Date: 20160825
  Receipt Date: 20160825
  Transmission Date: 20161109
  Serious: No
  Sender: FDA-Public Use
  Company Number: US-JAZZ-2016-US-006828

PATIENT
  Sex: Male

DRUGS (13)
  1. AMBIEN [Concomitant]
     Active Substance: ZOLPIDEM TARTRATE
  2. PATADAY [Concomitant]
     Active Substance: OLOPATADINE HYDROCHLORIDE
  3. XYREM [Suspect]
     Active Substance: SODIUM OXYBATE
     Indication: HYPERSOMNIA
     Dosage: 4.5 G, BID
     Route: 048
     Dates: start: 20160408, end: 201604
  4. MODAFINIL. [Concomitant]
     Active Substance: MODAFINIL
  5. VITAMIN B12 [Concomitant]
     Active Substance: CYANOCOBALAMIN
  6. XYREM [Suspect]
     Active Substance: SODIUM OXYBATE
     Dosage: 3 G, BID
     Route: 048
     Dates: start: 201604, end: 2016
  7. SELENIUM [Concomitant]
     Active Substance: SELENIUM
  8. ASPIRIN. [Concomitant]
     Active Substance: ASPIRIN
  9. VITAMIN C [Concomitant]
     Active Substance: ASCORBIC ACID
  10. VITAMIN D [Concomitant]
     Active Substance: CHOLECALCIFEROL
  11. DYMISTA [Concomitant]
     Active Substance: AZELASTINE HYDROCHLORIDE\FLUTICASONE PROPIONATE
  12. PROBIOTIC [Concomitant]
     Active Substance: PROBIOTICS NOS
  13. FEXOFENADINE [Concomitant]
     Active Substance: FEXOFENADINE\FEXOFENADINE HYDROCHLORIDE

REACTIONS (6)
  - Fatigue [Unknown]
  - Drug ineffective [Unknown]
  - Feeling abnormal [Unknown]
  - Headache [Unknown]
  - Hangover [Unknown]
  - Somnolence [Unknown]

NARRATIVE: CASE EVENT DATE: 2016
